FAERS Safety Report 24910822 (Version 2)
Quarter: 2025Q1

REPORT INFORMATION
  Report Type: Spontaneous
  Country: US (occurrence: US)
  Receive Date: 20250131
  Receipt Date: 20250207
  Transmission Date: 20250408
  Serious: No
  Sender: KYOWA
  Company Number: US-KYOWAKIRIN-2025KK001564

PATIENT

DRUGS (3)
  1. CRYSVITA [Suspect]
     Active Substance: BUROSUMAB-TWZA
     Indication: Hereditary hypophosphataemic rickets
     Dosage: 60 MG, 1X/2 WEEKS
     Route: 065
     Dates: start: 2019
  2. CRYSVITA [Suspect]
     Active Substance: BUROSUMAB-TWZA
     Route: 058
     Dates: start: 20240131
  3. TUMS [Concomitant]
     Active Substance: CALCIUM CARBONATE
     Indication: Blood calcium decreased
     Dosage: UNK, QD
     Route: 048

REACTIONS (1)
  - Arthralgia [Not Recovered/Not Resolved]

NARRATIVE: CASE EVENT DATE: 20240101
